FAERS Safety Report 25992937 (Version 1)
Quarter: 2025Q4

REPORT INFORMATION
  Report Type: Report from Study
  Country: US (occurrence: US)
  Receive Date: 20251103
  Receipt Date: 20251103
  Transmission Date: 20260119
  Serious: Yes (Other)
  Sender: ABBVIE
  Company Number: US-ABBVIE-6522739

PATIENT
  Age: 49 Year
  Sex: Female

DRUGS (1)
  1. RINVOQ [Suspect]
     Active Substance: UPADACITINIB
     Indication: Rheumatoid arthritis
     Route: 048
     Dates: start: 20240904

REACTIONS (4)
  - Knee arthroplasty [Unknown]
  - Fall [Unknown]
  - Patella fracture [Not Recovered/Not Resolved]
  - Muscle rupture [Unknown]

NARRATIVE: CASE EVENT DATE: 20250813
